FAERS Safety Report 5802891-6 (Version None)
Quarter: 2008Q2

REPORT INFORMATION
  Report Type: 
  Country: None (occurrence: None)
  Receive Date: 20080627
  Receipt Date: 20080123
  Transmission Date: 20081010
  Serious: Yes (Other)
  Sender: FDA-Public Use
  Company Number: 543429

PATIENT
  Age: 44 Year
  Sex: Female

DRUGS (3)
  1. INTERFERON ALFA [Suspect]
     Indication: HEPATITIS C
     Dosage: 3 PER WEEK INTRAMUSCULAR
     Route: 030
  2. SERTRALINE (SERTRALINE HYDROCHLORIDE) [Concomitant]
  3. ALPRAZOLAM [Concomitant]

REACTIONS (1)
  - DEPRESSION [None]
